FAERS Safety Report 7789533-8 (Version None)
Quarter: 2011Q3

REPORT INFORMATION
  Report Type: 
  Country: None (occurrence: None)
  Receive Date: 20110930
  Receipt Date: 20110924
  Transmission Date: 20111222
  Serious: Yes (Death)
  Sender: FDA-Public Use
  Company Number: AR-GENZYME-CLOF-1001631

PATIENT
  Sex: Female
  Weight: 55 kg

DRUGS (9)
  1. NEUPOGEN [Suspect]
     Indication: ACUTE LYMPHOCYTIC LEUKAEMIA
     Dosage: 300 MCG, QD
     Route: 042
     Dates: start: 20110222, end: 20110225
  2. OMEPRAZOLE [Concomitant]
     Indication: PRODUCT USED FOR UNKNOWN INDICATION
     Dosage: 40 MG, QD
     Route: 065
     Dates: start: 20110220, end: 20110509
  3. BACTRIM DS [Concomitant]
     Indication: PRODUCT USED FOR UNKNOWN INDICATION
     Dosage: 400MG/80MG, 3X/W (MON, WED, FRI)
     Route: 065
     Dates: start: 20110222, end: 20110509
  4. ALLOPURINOL [Concomitant]
     Indication: PRODUCT USED FOR UNKNOWN INDICATION
     Dosage: 300 MG, QD
     Route: 065
     Dates: start: 20110220, end: 20110509
  5. FLUDARA [Suspect]
     Indication: ACUTE LYMPHOCYTIC LEUKAEMIA
     Dosage: 30 MG/M2, QD
     Route: 042
     Dates: start: 20110222, end: 20110225
  6. CYTARABINE [Suspect]
     Indication: ACUTE LYMPHOCYTIC LEUKAEMIA
     Dosage: 2 G/M2, QD
     Route: 042
     Dates: start: 20110222, end: 20110225
  7. NORETHINDRONE [Concomitant]
     Indication: PRODUCT USED FOR UNKNOWN INDICATION
     Dosage: 5 MG, QD
     Route: 065
     Dates: start: 20110220, end: 20110509
  8. CLOLAR [Suspect]
     Indication: ACUTE LYMPHOCYTIC LEUKAEMIA
     Dosage: 40 MG/M2, QD
     Route: 042
     Dates: start: 20110414, end: 20110417
  9. CLOLAR [Suspect]
     Dosage: 40 MG/M2, QD
     Route: 042
     Dates: start: 20110419, end: 20110419

REACTIONS (5)
  - NEUTROPENIC SEPSIS [None]
  - PANCYTOPENIA [None]
  - CARDIO-RESPIRATORY ARREST [None]
  - ACUTE LYMPHOCYTIC LEUKAEMIA RECURRENT [None]
  - HYPOTENSION [None]
